FAERS Safety Report 6478929-2 (Version None)
Quarter: 2009Q4

REPORT INFORMATION
  Report Type: 
  Country: None (occurrence: None)
  Receive Date: 20091207
  Receipt Date: 20091130
  Transmission Date: 20100525
  Serious: Yes (Death, Hospitalization, Other)
  Sender: FDA-Public Use
  Company Number: US-ELI_LILLY_AND_COMPANY-US200911007329

PATIENT
  Sex: Female

DRUGS (2)
  1. FORTEO [Suspect]
     Indication: OSTEOPOROSIS
     Dosage: 20 UG, DAILY (1/D)
     Dates: start: 20090801, end: 20091121
  2. COPAXONE [Concomitant]
     Indication: MULTIPLE SCLEROSIS
     Dosage: UNK, DAILY (1/D)

REACTIONS (4)
  - CEREBRAL HAEMORRHAGE [None]
  - INTRACRANIAL ANEURYSM [None]
  - PNEUMONIA [None]
  - SEPSIS [None]
